FAERS Safety Report 5826214-1 (Version None)
Quarter: 2008Q3

REPORT INFORMATION
  Report Type: 
  Country: None (occurrence: None)
  Receive Date: 20080729
  Receipt Date: 20080722
  Transmission Date: 20090109
  Serious: Yes (Hospitalization)
  Sender: FDA-Public Use
  Company Number: FR-PFIZER INC-2008061578

PATIENT
  Sex: Male

DRUGS (4)
  1. DOXAZOSIN MESYLATE [Suspect]
     Dates: start: 20080604, end: 20080605
  2. SYMBICORT [Concomitant]
  3. VERAPAMIL [Concomitant]
  4. GLUCOVANCE [Concomitant]

REACTIONS (2)
  - FALL [None]
  - HYPOTENSION [None]
